FAERS Safety Report 9149662 (Version 1)
Quarter: 2013Q1

REPORT INFORMATION
  Report Type: Spontaneous
  Country: SE (occurrence: SE)
  Receive Date: 20130308
  Receipt Date: 20130308
  Transmission Date: 20140127
  Serious: Yes (Other)
  Sender: FDA-Public Use
  Company Number: SE-PFIZER INC-2013076980

PATIENT
  Sex: Female

DRUGS (2)
  1. LYRICA [Suspect]
     Indication: NEURALGIA
     Dosage: UNK
     Dates: start: 2012
  2. CYMBALTA [Concomitant]
     Dosage: UNK

REACTIONS (2)
  - Weight increased [Not Recovered/Not Resolved]
  - Glucose tolerance impaired [Not Recovered/Not Resolved]
